FAERS Safety Report 5566812-6 (Version None)
Quarter: 2007Q4

REPORT INFORMATION
  Report Type: 
  Country: None (occurrence: None)
  Receive Date: 20071218
  Receipt Date: 20071218
  Transmission Date: 20080405
  Serious: No
  Sender: FDA-Public Use
  Company Number: None

PATIENT
  Age: 25 Year
  Sex: Male
  Weight: 74.3899 kg

DRUGS (1)
  1. OLANZAPINE [Suspect]
     Dosage: 10MG PO
     Route: 048
     Dates: start: 20050411, end: 20050924

REACTIONS (1)
  - WEIGHT INCREASED [None]
